FAERS Safety Report 6261213-X (Version None)
Quarter: 2009Q3

REPORT INFORMATION
  Report Type: 
  Country: None (occurrence: None)
  Receive Date: 20090709
  Receipt Date: 20080915
  Transmission Date: 20100115
  Serious: No
  Sender: FDA-Public Use
  Company Number: US-KINGPHARMUSA00001-K200801079

PATIENT
  Sex: Female

DRUGS (2)
  1. LEVOXYL [Suspect]
  2. FERROUS SULFATE TAB [Interacting]
     Indication: ANAEMIA

REACTIONS (3)
  - ANAEMIA [None]
  - DRUG INTERACTION [None]
  - NAUSEA [None]
